FAERS Safety Report 7758897-3 (Version None)
Quarter: 2011Q3

REPORT INFORMATION
  Report Type: 
  Country: None (occurrence: None)
  Receive Date: 20110916
  Receipt Date: 20110916
  Transmission Date: 20111222
  Serious: No
  Sender: FDA-Public Use
  Company Number: None

PATIENT
  Age: 70 Year
  Sex: Male
  Weight: 51.2 kg

DRUGS (1)
  1. LANTHANUM CARBONATE [Suspect]
     Indication: RENAL FAILURE CHRONIC
     Dosage: 500 MG TID PO
     Route: 048
     Dates: start: 20110801, end: 20110819

REACTIONS (1)
  - DYSPNOEA [None]
